FAERS Safety Report 5479727-9 (Version None)
Quarter: 2007Q4

REPORT INFORMATION
  Report Type: 
  Country: None (occurrence: None)
  Receive Date: 20071003
  Receipt Date: 20070924
  Transmission Date: 20080405
  Serious: Yes (Other)
  Sender: FDA-Public Use
  Company Number: 2007331676

PATIENT
  Age: 60 Year
  Sex: Female
  Weight: 61.2 kg

DRUGS (1)
  1. ROGAINE [Suspect]
     Indication: ALOPECIA
     Dosage: TOPICAL
     Route: 061
     Dates: start: 20060301

REACTIONS (3)
  - ARTERIOVENOUS FISTULA [None]
  - PAIN OF SKIN [None]
  - TINNITUS [None]
